FAERS Safety Report 10237779 (Version 1)
Quarter: 2014Q2

REPORT INFORMATION
  Report Type: Spontaneous
  Country: FR (occurrence: FR)
  Receive Date: 20140616
  Receipt Date: 20140616
  Transmission Date: 20141212
  Serious: Yes (Hospitalization, Other)
  Sender: FDA-Public Use
  Company Number: FR-AMGEN-FRASP2014043497

PATIENT
  Age: 65 Year
  Sex: Male
  Weight: 76 kg

DRUGS (6)
  1. ENBREL [Suspect]
     Indication: RHEUMATOID ARTHRITIS
     Dosage: 50 MG, WEEKLY
     Route: 058
     Dates: start: 200406
  2. SULFARLEM [Concomitant]
     Dosage: UNK
     Route: 048
  3. VOLTARENE                          /00372302/ [Concomitant]
     Dosage: UNK
     Route: 048
  4. LANZOR [Concomitant]
     Dosage: UNK
     Route: 048
  5. NOVATREX                           /00113801/ [Concomitant]
     Dosage: UNK
     Route: 048
     Dates: start: 200205, end: 200610
  6. DOLIPRANE [Concomitant]
     Dosage: UNK
     Route: 048

REACTIONS (3)
  - Colon cancer [Unknown]
  - Metastases to lymph nodes [Unknown]
  - Renal cyst [Unknown]
